FAERS Safety Report 7461148-0 (Version None)
Quarter: 2011Q2

REPORT INFORMATION
  Report Type: 
  Country: None (occurrence: None)
  Receive Date: 20110505
  Receipt Date: 20101018
  Transmission Date: 20111010
  Serious: No
  Sender: FDA-Public Use
  Company Number: US-AMGEN-USASP2010000602

PATIENT
  Age: 53 Year
  Sex: Female

DRUGS (1)
  1. ENBREL [Suspect]
     Indication: RHEUMATOID ARTHRITIS
     Dosage: 50 MG, QWK
     Dates: start: 20090101

REACTIONS (4)
  - RHEUMATOID ARTHRITIS [None]
  - FOOT DEFORMITY [None]
  - POSTOPERATIVE WOUND INFECTION [None]
  - IMPAIRED HEALING [None]
